FAERS Safety Report 6176034-6 (Version None)
Quarter: 2009Q2

REPORT INFORMATION
  Report Type: 
  Country: None (occurrence: None)
  Receive Date: 20090501
  Receipt Date: 20090423
  Transmission Date: 20091009
  Serious: Yes (Other)
  Sender: FDA-Public Use
  Company Number: FR-PFIZER INC-2009202904

PATIENT

DRUGS (3)
  1. FOSPHENYTOIN SODIUM [Suspect]
     Indication: CONVULSION
     Dosage: 75 MG/ML, UNK
     Route: 042
     Dates: start: 20090224, end: 20090225
  2. RIVOTRIL [Concomitant]
     Route: 042
  3. TEGRETOL [Concomitant]
     Route: 042

REACTIONS (3)
  - DRUG PRESCRIBING ERROR [None]
  - MEDICATION ERROR [None]
  - OVERDOSE [None]
